FAERS Safety Report 8921345 (Version 2)
Quarter: 2013Q1

REPORT INFORMATION
  Report Type: Report from Study
  Country: CA (occurrence: CA)
  Receive Date: 20121121
  Receipt Date: 20130110
  Transmission Date: 20140127
  Serious: Yes (Other)
  Sender: FDA-Public Use
  Company Number: CA-JNJFOC-20121107185

PATIENT
  Age: 33 None
  Sex: Female
  Weight: 59.9 kg

DRUGS (2)
  1. REMICADE [Suspect]
     Indication: CROHN^S DISEASE
     Route: 042
  2. ENTOCORT [Concomitant]
     Route: 065

REACTIONS (3)
  - Tooth abscess [Unknown]
  - Sensitivity of teeth [Unknown]
  - Arthropod bite [Recovering/Resolving]
